FAERS Safety Report 5075836-7 (Version None)
Quarter: 2006Q3

REPORT INFORMATION
  Report Type: 
  Country: None (occurrence: None)
  Receive Date: 20060807
  Receipt Date: 20060807
  Transmission Date: 20061208
  Serious: Yes (Other)
  Sender: FDA-Public Use
  Company Number: None

PATIENT
  Sex: Female
  Weight: 91.6266 kg

DRUGS (3)
  1. PAXIL [Suspect]
     Indication: DEPRESSION
     Dosage: 20MG  Q DAY  PO
     Route: 048
     Dates: start: 20040329
  2. PAXIL [Suspect]
     Indication: DEPRESSION
     Dosage: 20MG  Q DAY  PO
     Route: 048
     Dates: start: 20051213
  3. PAXIL [Suspect]
     Indication: DEPRESSION
     Dosage: 20MG  Q DAY  PO
     Route: 048
     Dates: start: 20060117

REACTIONS (2)
  - MIGRAINE [None]
  - THERAPEUTIC RESPONSE UNEXPECTED WITH DRUG SUBSTITUTION [None]
